FAERS Safety Report 16070591 (Version 2)
Quarter: 2019Q2

REPORT INFORMATION
  Report Type: Spontaneous
  Country: US (occurrence: US)
  Receive Date: 20190314
  Receipt Date: 20190502
  Transmission Date: 20190711
  Serious: No
  Sender: FDA-Public Use
  Company Number: US-ALNYLAM PHARMACEUTICALS, INC.-ALN-2019-000120

PATIENT
  Age: 40 Year
  Sex: Female

DRUGS (2)
  1. BENADRYL [Suspect]
     Active Substance: DIPHENHYDRAMINE HYDROCHLORIDE
     Indication: PROPHYLAXIS
  2. ONPATTRO [Suspect]
     Active Substance: PATISIRAN SODIUM
     Indication: HEREDITARY NEUROPATHIC AMYLOIDOSIS
     Dosage: UNK
     Route: 042
     Dates: start: 20181115

REACTIONS (6)
  - Glaucoma [Unknown]
  - Pruritus [Recovered/Resolved]
  - Asthenia [Unknown]
  - Vitamin A decreased [Recovering/Resolving]
  - Malaise [Unknown]
  - Night blindness [Unknown]

NARRATIVE: CASE EVENT DATE: 20190423
